FAERS Safety Report 10925480 (Version 1)
Quarter: 2015Q1

REPORT INFORMATION
  Report Type: Spontaneous
  Country: US (occurrence: None)
  Receive Date: 20150316
  Receipt Date: 20150316
  Transmission Date: 20150721
  Serious: No
  Sender: FDA-Public Use
  Company Number: None

PATIENT
  Age: 77 Year
  Sex: Female
  Weight: 70.31 kg

DRUGS (10)
  1. OXYCODONE [Suspect]
     Active Substance: OXYCODONE
  2. SIMVASTIN [Concomitant]
     Active Substance: SIMVASTATIN
  3. VIT B-12 [Concomitant]
  4. IRON [Concomitant]
     Active Substance: IRON
  5. NEURONTIN [Concomitant]
     Active Substance: GABAPENTIN
  6. CELEBREX [Concomitant]
     Active Substance: CELECOXIB
  7. VITAMIN D [Concomitant]
     Active Substance: CHOLECALCIFEROL
  8. ZINC [Concomitant]
     Active Substance: ZINC\ZINC CHLORIDE
  9. PROZAC [Concomitant]
     Active Substance: FLUOXETINE HYDROCHLORIDE
  10. CINNAMON. [Concomitant]
     Active Substance: CINNAMON

REACTIONS (2)
  - Product substitution issue [None]
  - Drug ineffective [None]

NARRATIVE: CASE EVENT DATE: 20150122
